FAERS Safety Report 8163203-9 (Version None)
Quarter: 2012Q1

REPORT INFORMATION
  Report Type: 
  Country: None (occurrence: None)
  Receive Date: 20120224
  Receipt Date: 20110422
  Transmission Date: 20120608
  Serious: No
  Sender: FDA-Public Use
  Company Number: US-PFIZER INC-K201100484

PATIENT
  Age: 38 Year
  Sex: Female
  Weight: 58.957 kg

DRUGS (5)
  1. FLECTOR [Suspect]
     Indication: BACK PAIN
     Dosage: 0.5 PATCH, BID
     Route: 061
     Dates: start: 20110401
  2. ANXIOLYTICS [Concomitant]
     Indication: ANXIETY
     Dosage: UNK
  3. FLECTOR [Suspect]
     Indication: INFLAMMATION
  4. ADDERALL 5 [Concomitant]
     Indication: ATTENTION DEFICIT/HYPERACTIVITY DISORDER
     Dosage: UNK
  5. OXYCODONE [Concomitant]
     Indication: BACK PAIN
     Dosage: UNK

REACTIONS (1)
  - AMPHETAMINES POSITIVE [None]
